FAERS Safety Report 17743517 (Version 1)
Quarter: 2020Q2

REPORT INFORMATION
  Report Type: Spontaneous
  Country: US (occurrence: US)
  Receive Date: 20200505
  Receipt Date: 20200505
  Transmission Date: 20200714
  Serious: No
  Sender: FDA-Public Use
  Company Number: US-GLAXOSMITHKLINE-US2020073309

PATIENT
  Age: 36 Year
  Sex: Female

DRUGS (1)
  1. EXCEDRIN MIGRAINE [Suspect]
     Active Substance: ACETAMINOPHEN\ASPIRIN\CAFFEINE
     Indication: MIGRAINE
     Dosage: 4 UNK (SHE TOOK 4 AT A TIME)
     Dates: start: 20200425, end: 20200426

REACTIONS (6)
  - Hypersensitivity [Unknown]
  - Overdose [Unknown]
  - Swelling [Unknown]
  - Confusional state [Unknown]
  - Swelling face [Unknown]
  - Nausea [Unknown]

NARRATIVE: CASE EVENT DATE: 20200425
